FAERS Safety Report 8175756-5 (Version None)
Quarter: 2012Q1

REPORT INFORMATION
  Report Type: 
  Country: None (occurrence: None)
  Receive Date: 20120228
  Receipt Date: 20120228
  Transmission Date: 20120608
  Serious: No
  Sender: FDA-Public Use
  Company Number: None

PATIENT
  Age: 57 Year
  Sex: Female

DRUGS (4)
  1. PEGASYS [Suspect]
     Indication: HEPATITIS C
     Dosage: 180MCG SQ WEEKLY
     Route: 058
     Dates: start: 20120109
  2. PEGASYS [Suspect]
     Indication: COMA HEPATIC
     Dosage: 180MCG SQ WEEKLY
     Route: 058
     Dates: start: 20120109
  3. INCIVEK [Concomitant]
  4. RIBASPHERE [Suspect]
     Dosage: 1000MG PO DAILY
     Route: 048
     Dates: start: 20120109

REACTIONS (3)
  - BLISTER [None]
  - PRURITUS [None]
  - ECZEMA [None]
